FAERS Safety Report 4885069-2 (Version None)
Quarter: 2006Q1

REPORT INFORMATION
  Report Type: 
  Country: None (occurrence: None)
  Receive Date: 20060119
  Receipt Date: 20060106
  Transmission Date: 20060701
  Serious: Yes (Hospitalization)
  Sender: FDA-Public Use
  Company Number: FR-MERCK-0601FRA00028

PATIENT
  Age: 46 Year
  Sex: Female

DRUGS (7)
  1. NOROXIN [Suspect]
     Route: 048
     Dates: start: 20051117, end: 20051117
  2. OFLOXACIN [Suspect]
     Route: 048
     Dates: start: 20051129, end: 20051206
  3. KETOPROFEN [Suspect]
     Route: 054
     Dates: start: 20051202, end: 20051204
  4. ESOMEPRAZOLE MAGNESIUM [Concomitant]
     Route: 048
  5. LEVOTHYROXINE SODIUM [Concomitant]
     Route: 048
  6. LEVOCETIRIZINE [Concomitant]
     Route: 048
  7. ECONAZOLE [Concomitant]
     Route: 067

REACTIONS (1)
  - COLITIS [None]
